FAERS Safety Report 4645277-2 (Version None)
Quarter: 2005Q2

REPORT INFORMATION
  Report Type: 
  Country: None (occurrence: None)
  Receive Date: 20050331
  Receipt Date: 20040223
  Transmission Date: 20051028
  Serious: No
  Sender: FDA-Public Use
  Company Number: 05P-163-0291790

PATIENT
  Age: 59 Year
  Sex: Female

DRUGS (6)
  1. HUMIRA [Suspect]
     Indication: RHEUMATOID ARTHRITIS
     Dosage: 40 MG, 1 IN 1 WK, SUBCUTANEOUS
     Route: 058
     Dates: start: 20040101
  2. METHOTREXATE [Concomitant]
  3. ALENDRONATE SODIUM [Concomitant]
  4. CALCIUM GLUCONATE [Concomitant]
  5. VICODIN [Concomitant]
  6. PANTOPRAZOLE [Concomitant]

REACTIONS (1)
  - DRUG INEFFECTIVE [None]
